FAERS Safety Report 8052514 (Version 2)
Quarter: 2016Q3

REPORT INFORMATION
  Report Type: Report from Study
  Country: JP (occurrence: JP)
  Receive Date: 20110725
  Receipt Date: 20160805
  Transmission Date: 20161109
  Serious: Yes (Death, Life-Threatening, Other)
  Sender: FDA-Public Use
  Company Number: JP-GILEAD-E2B_00001412

PATIENT
  Age: 81 Year
  Sex: Female
  Weight: 42 kg

DRUGS (58)
  1. PREDONINE [Concomitant]
     Active Substance: PREDNISOLONE\PREDNISOLONE ACETATE\PREDNISOLONE SODIUM SUCCINATE
     Dosage: UNK
     Dates: start: 20110424, end: 20110510
  2. BAKTAR [Concomitant]
     Active Substance: SULFAMETHOXAZOLE\TRIMETHOPRIM
     Indication: INFECTION PROPHYLAXIS
     Dosage: UNK
     Dates: end: 20110608
  3. PURSENNID [Concomitant]
     Active Substance: SENNOSIDES A AND B
     Indication: CONSTIPATION PROPHYLAXIS
     Dosage: UNK
     Dates: start: 20110421, end: 20110424
  4. PRAZAXA [Concomitant]
     Active Substance: DABIGATRAN ETEXILATE MESYLATE
     Indication: THROMBOSIS PROPHYLAXIS
     Dosage: UNK
     Dates: start: 20110510, end: 20110617
  5. GENINAX [Concomitant]
     Active Substance: GARENOXACIN MESYLATE
     Indication: INFECTION
     Dosage: UNK
     Dates: start: 20110602, end: 20110608
  6. MEROPEN [Concomitant]
     Active Substance: MEROPENEM
     Indication: INFECTION
     Dosage: UNK
     Dates: start: 20110607, end: 20110620
  7. LOXONIN [Concomitant]
     Active Substance: LOXOPROFEN SODIUM
     Indication: BACK PAIN
     Dosage: UNK
     Dates: start: 20110527, end: 20110625
  8. GASTER [Concomitant]
     Active Substance: FAMOTIDINE
     Indication: PROPHYLAXIS AGAINST GASTROINTESTINAL ULCER
     Dosage: UNK
     Dates: start: 20110617, end: 20110624
  9. ITOROL [Concomitant]
     Active Substance: ISOSORBIDE MONONITRATE
     Dosage: UNK
     Dates: end: 20110625
  10. PROGRAF [Concomitant]
     Active Substance: TACROLIMUS\TACROLIMUS ANHYDROUS
     Dosage: UNK
     Dates: start: 20110421, end: 20110511
  11. VFEND [Concomitant]
     Active Substance: VORICONAZOLE
     Indication: INFECTION
     Dosage: UNK
     Dates: start: 20110607, end: 20110624
  12. ALBUMIN [Concomitant]
     Active Substance: ALBUMIN HUMAN
     Indication: POLYURIA
     Dosage: UNK
     Dates: start: 20110624, end: 20110624
  13. FUROSEMIDE. [Concomitant]
     Active Substance: FUROSEMIDE
     Dosage: UNK
     Dates: start: 20110424, end: 20110510
  14. FUROSEMIDE. [Concomitant]
     Active Substance: FUROSEMIDE
     Dosage: UNK
     Dates: start: 20110621, end: 20110624
  15. MEXITIL [Concomitant]
     Active Substance: MEXILETINE HYDROCHLORIDE
     Indication: ARRHYTHMIA
     Dosage: UNK
     Dates: start: 20110511, end: 20110617
  16. DIGOSIN [Concomitant]
     Active Substance: DIGOXIN
     Indication: PROPHYLAXIS
     Dosage: UNK
     Dates: start: 20110424, end: 20110424
  17. GLUCOSE [Concomitant]
     Active Substance: DEXTROSE
     Indication: FLUID REPLACEMENT
     Dosage: UNK
     Dates: start: 20110426, end: 20110510
  18. SAHNE (JAPAN) [Concomitant]
     Dosage: UNK
     Dates: end: 20110625
  19. FORTEO [Concomitant]
     Active Substance: TERIPARATIDE
     Dosage: UNK
     Dates: end: 20110624
  20. NU-LOTAN [Concomitant]
     Active Substance: LOSARTAN POTASSIUM
     Indication: HYPERTENSION
     Dosage: UNK
     Dates: start: 20110511, end: 20110518
  21. HYPEN [Concomitant]
     Active Substance: ETODOLAC
     Indication: BACK PAIN
     Dosage: UNK
     Dates: start: 20110527, end: 20110607
  22. SOLITA-T NO.1 [Concomitant]
     Indication: FLUID REPLACEMENT
     Dosage: UNK
     Dates: start: 20110511, end: 20110518
  23. VASOLAN [Concomitant]
     Active Substance: VERAPAMIL HYDROCHLORIDE
     Dosage: UNK
     Dates: start: 20110620, end: 20110621
  24. BACTRAMIN [Concomitant]
     Active Substance: SULFAMETHOXAZOLE\TRIMETHOPRIM
     Indication: INFECTION
     Dosage: UNK
     Dates: start: 20110621, end: 20110621
  25. AMBRISENTAN [Suspect]
     Active Substance: AMBRISENTAN
     Indication: PULMONARY ARTERIAL HYPERTENSION
     Dosage: 5 MG, QD
     Route: 048
     Dates: start: 20110407, end: 20110621
  26. ROHYPNOL [Concomitant]
     Active Substance: FLUNITRAZEPAM
     Dosage: UNK
     Dates: start: 20110501, end: 20110501
  27. ROHYPNOL [Concomitant]
     Active Substance: FLUNITRAZEPAM
     Dosage: UNK
     Dates: start: 20110508, end: 20110508
  28. MAGMITT [Concomitant]
     Active Substance: MAGNESIUM OXIDE
     Indication: CONSTIPATION PROPHYLAXIS
     Dosage: UNK
     Dates: start: 20110530, end: 20110617
  29. MUCOSTA [Concomitant]
     Active Substance: REBAMIPIDE
     Indication: PROPHYLAXIS AGAINST GASTROINTESTINAL ULCER
     Dosage: UNK
     Dates: start: 20110601, end: 20110617
  30. FRAGMIN [Concomitant]
     Active Substance: DALTEPARIN SODIUM
     Indication: THROMBOSIS PROPHYLAXIS
     Dosage: UNK
     Dates: start: 20110424, end: 20110624
  31. VASOLAN [Concomitant]
     Active Substance: VERAPAMIL HYDROCHLORIDE
     Indication: TACHYCARDIA
     Dosage: UNK
     Dates: start: 20110424, end: 20110426
  32. MS ONSHIPPU [Concomitant]
     Indication: BACK PAIN
     Dosage: UNK
     Dates: start: 20110524, end: 20110625
  33. SOLU-MEDROL [Concomitant]
     Active Substance: METHYLPREDNISOLONE SODIUM SUCCINATE
     Dosage: UNK
     Dates: start: 20110617, end: 20110619
  34. EPADEL S [Concomitant]
     Active Substance: ICOSAPENT ETHYL
     Dosage: UNK
     Dates: end: 20110424
  35. PREDONINE [Concomitant]
     Active Substance: PREDNISOLONE\PREDNISOLONE ACETATE\PREDNISOLONE SODIUM SUCCINATE
     Dosage: UNK
     Dates: start: 20110620, end: 20110624
  36. MAINTATE [Concomitant]
     Active Substance: BISOPROLOL FUMARATE
     Indication: TACHYCARDIA
     Dosage: UNK
     Dates: start: 20110426, end: 20110621
  37. FUROSEMIDE. [Concomitant]
     Active Substance: FUROSEMIDE
     Dosage: UNK
     Dates: start: 20110617, end: 20110619
  38. FUROSEMIDE. [Concomitant]
     Active Substance: FUROSEMIDE
     Dosage: UNK
     Dates: start: 20110610, end: 20110616
  39. SOLITA-T NO.3 [Concomitant]
     Indication: FLUID REPLACEMENT
     Dosage: UNK
     Dates: start: 20110424, end: 20110624
  40. DIGOSIN [Concomitant]
     Active Substance: DIGOXIN
     Dosage: UNK
     Dates: start: 20110620, end: 20110620
  41. TAKEPRON OD TABLETS [Concomitant]
     Indication: PROPHYLAXIS AGAINST GASTROINTESTINAL ULCER
     Dosage: UNK
     Dates: start: 20110407, end: 20110617
  42. PREDONINE [Concomitant]
     Active Substance: PREDNISOLONE\PREDNISOLONE ACETATE\PREDNISOLONE SODIUM SUCCINATE
     Dosage: UNK
     Dates: start: 20110307, end: 20110617
  43. WARFARIN POTASSIUM [Concomitant]
     Active Substance: WARFARIN POTASSIUM
     Indication: THROMBOSIS PROPHYLAXIS
     Dosage: UNK
     Dates: end: 20110424
  44. EURODIN TABLET (JAPAN) [Concomitant]
     Indication: PROPHYLAXIS
     Dosage: UNK
     Dates: start: 20110406, end: 20110424
  45. NEORAL [Concomitant]
     Active Substance: CYCLOSPORINE
     Dosage: UNK
     Dates: start: 20110411, end: 20110424
  46. ROHYPNOL [Concomitant]
     Active Substance: FLUNITRAZEPAM
     Dosage: UNK
     Dates: start: 20110503, end: 20110503
  47. RECALBON (JAPAN) [Concomitant]
     Dosage: UNK
     Dates: start: 20110512, end: 20110513
  48. SOLITA-T NO.1 [Concomitant]
     Dosage: UNK
     Dates: start: 20110620, end: 20110624
  49. WHITE PETROLATUM [Concomitant]
     Active Substance: PETROLATUM
     Indication: PROPHYLAXIS
     Dosage: UNK
     Dates: start: 20110523, end: 20110625
  50. DOBUTREX [Concomitant]
     Active Substance: DOBUTAMINE HYDROCHLORIDE
     Indication: PROPHYLAXIS
     Dosage: UNK
     Dates: start: 20110623, end: 20110624
  51. BERASUS LA [Concomitant]
     Indication: PULMONARY ARTERIAL HYPERTENSION
     Dosage: UNK
     Dates: end: 20110511
  52. VOLTAREN [Concomitant]
     Active Substance: DICLOFENAC SODIUM
     Dosage: UNK
     Dates: end: 20110424
  53. ROHYPNOL [Concomitant]
     Active Substance: FLUNITRAZEPAM
     Indication: PROPHYLAXIS
     Dosage: UNK
     Dates: start: 20110421, end: 20110424
  54. ROHYPNOL [Concomitant]
     Active Substance: FLUNITRAZEPAM
     Dosage: UNK
     Dates: start: 20110619, end: 20110622
  55. FUROSEMIDE. [Concomitant]
     Active Substance: FUROSEMIDE
     Indication: POLYURIA
     Dosage: UNK
     Dates: start: 20110511, end: 20110512
  56. SEISHOKU [Concomitant]
     Active Substance: SODIUM CHLORIDE
     Indication: FLUID REPLACEMENT
     Dosage: UNK
     Dates: start: 20110607, end: 20110617
  57. OLIVES [Concomitant]
     Active Substance: LIDOCAINE HYDROCHLORIDE
     Indication: ARRHYTHMIA
     Dosage: UNK
     Dates: start: 20110426, end: 20110510
  58. NEUART [Concomitant]
     Active Substance: ANTITHROMBIN III HUMAN
     Indication: THROMBOSIS PROPHYLAXIS
     Dosage: UNK
     Dates: start: 20110622, end: 20110624

REACTIONS (2)
  - Pulmonary tuberculosis [Fatal]
  - Tuberculosis [Fatal]

NARRATIVE: CASE EVENT DATE: 20110608
